FAERS Safety Report 5041312-0 (Version None)
Quarter: 2006Q2

REPORT INFORMATION
  Report Type: 
  Country: None (occurrence: None)
  Receive Date: 20060626
  Receipt Date: 20060609
  Transmission Date: 20061013
  Serious: Yes (Hospitalization)
  Sender: FDA-Public Use
  Company Number: 2006PV014728

PATIENT
  Age: 43 Year
  Sex: Male
  Weight: 147.419 kg

DRUGS (7)
  1. BYETTA [Suspect]
     Indication: DIABETES MELLITUS NON-INSULIN-DEPENDENT
     Dosage: 5 MCG; BID; SC
     Route: 058
     Dates: start: 20060314, end: 20060519
  2. METFORMIN [Concomitant]
  3. GLYBURIDE [Concomitant]
  4. LISINOPRIL [Concomitant]
  5. ASPIRIN [Concomitant]
  6. LOVASTATIN [Concomitant]
  7. MULTIVITAMIN [Concomitant]

REACTIONS (9)
  - BOWEL SOUNDS ABNORMAL [None]
  - DIARRHOEA [None]
  - DIZZINESS [None]
  - HEADACHE [None]
  - ILEUS [None]
  - OEDEMA PERIPHERAL [None]
  - PANCREATITIS ACUTE [None]
  - PNEUMONIA [None]
  - WEIGHT DECREASED [None]
